FAERS Safety Report 6963890-4 (Version None)
Quarter: 2010Q3

REPORT INFORMATION
  Report Type: 
  Country: None (occurrence: None)
  Receive Date: 20100831
  Receipt Date: 20100819
  Transmission Date: 20110219
  Serious: Yes (Death, Life-Threatening, Hospitalization, Disabling)
  Sender: FDA-Public Use
  Company Number: 2010MA002054

PATIENT
  Age: 67 Year
  Sex: Male

DRUGS (5)
  1. BICALUTAMIDE [Suspect]
     Indication: PROSTATE CANCER
     Dosage: 50 MG;QD;PO
     Route: 048
     Dates: start: 20100101
  2. ZOLADEX [Concomitant]
  3. UNIKALK [Concomitant]
  4. JERN [Concomitant]
  5. PREV MEDS [Concomitant]

REACTIONS (5)
  - EXTRADURAL HAEMATOMA [None]
  - PLATELET FUNCTION TEST ABNORMAL [None]
  - SUBDURAL HAEMATOMA [None]
  - THROMBOCYTOPENIA [None]
  - TREATMENT FAILURE [None]
